FAERS Safety Report 12125642 (Version 1)
Quarter: 2016Q1

REPORT INFORMATION
  Report Type: Spontaneous
  Country: US (occurrence: US)
  Receive Date: 20160229
  Receipt Date: 20160229
  Transmission Date: 20160526
  Serious: Yes (Hospitalization)
  Sender: FDA-Public Use
  Company Number: US-ABBVIE-15P-163-1437849-00

PATIENT
  Sex: Male

DRUGS (4)
  1. ANDROGEL [Suspect]
     Active Substance: TESTOSTERONE
     Indication: BLOOD TESTOSTERONE DECREASED
     Route: 061
  2. TESTIM [Suspect]
     Active Substance: TESTOSTERONE
     Indication: BLOOD TESTOSTERONE DECREASED
     Route: 065
     Dates: end: 201302
  3. ANDROGEL [Suspect]
     Active Substance: TESTOSTERONE
     Route: 061
  4. ANDROGEL [Suspect]
     Active Substance: TESTOSTERONE
     Route: 061
     Dates: start: 201302, end: 20130807

REACTIONS (10)
  - Economic problem [Unknown]
  - Social problem [Unknown]
  - Deep vein thrombosis [Unknown]
  - Deep vein thrombosis [Unknown]
  - Unevaluable event [Unknown]
  - Injury [Unknown]
  - Balance disorder [Unknown]
  - Pulmonary embolism [Unknown]
  - Disability [Unknown]
  - Pain [Unknown]

NARRATIVE: CASE EVENT DATE: 20100126
